FAERS Safety Report 8594066-5 (Version None)
Quarter: 2012Q3

REPORT INFORMATION
  Report Type: 
  Country: None (occurrence: None)
  Receive Date: 20120814
  Receipt Date: 20120807
  Transmission Date: 20120928
  Serious: Yes (Hospitalization)
  Sender: FDA-Public Use
  Company Number: PHHY2012GB068647

PATIENT
  Age: 83 Year
  Sex: Male

DRUGS (9)
  1. OMEPRAZOLE [Concomitant]
  2. ALFUZOSIN [Concomitant]
  3. OLMESARTAN MEDOXOMIL [Concomitant]
  4. METHOTREXATE [Suspect]
     Indication: RHEUMATOID ARTHRITIS
     Dosage: 20 MG, UNK
  5. FOLIC ACID [Concomitant]
  6. ASPIRIN [Concomitant]
  7. NSAID'S [Concomitant]
  8. LERCANIDIPINE [Concomitant]
  9. SIMVASTATIN [Concomitant]

REACTIONS (19)
  - MUSCULAR WEAKNESS [None]
  - PARAESTHESIA [None]
  - NORMOCHROMIC NORMOCYTIC ANAEMIA [None]
  - LYMPHOPENIA [None]
  - PLEURAL EFFUSION [None]
  - LETHARGY [None]
  - SOFT TISSUE MASS [None]
  - BLOOD PARATHYROID HORMONE DECREASED [None]
  - MULTIPLE FRACTURES [None]
  - DECREASED APPETITE [None]
  - CONSTIPATION [None]
  - ANAEMIA [None]
  - PELVIC PAIN [None]
  - HYPERCALCAEMIA [None]
  - SPINAL COLUMN STENOSIS [None]
  - LYMPHADENOPATHY [None]
  - BLOOD ALKALINE PHOSPHATASE INCREASED [None]
  - LYMPHOPROLIFERATIVE DISORDER [None]
  - WEIGHT DECREASED [None]
